FAERS Safety Report 4438575-9 (Version None)
Quarter: 2004Q3

REPORT INFORMATION
  Report Type: 
  Country: None (occurrence: None)
  Receive Date: 20040728
  Receipt Date: 20040302
  Transmission Date: 20050211
  Serious: No
  Sender: FDA-Public Use
  Company Number: USA040360733

PATIENT
  Age: 16 Year
  Sex: Female

DRUGS (3)
  1. ZYPREXA [Suspect]
  2. STRATTERA [Suspect]
  3. CONCERTA [Concomitant]

REACTIONS (1)
  - WEIGHT INCREASED [None]
